FAERS Safety Report 25775019 (Version 2)
Quarter: 2025Q3

REPORT INFORMATION
  Report Type: Spontaneous
  Country: US (occurrence: US)
  Receive Date: 20250909
  Receipt Date: 20250925
  Transmission Date: 20251020
  Serious: Yes (Other)
  Sender: PFIZER
  Company Number: US-PFIZER INC-202200309083

PATIENT
  Age: 75 Year
  Sex: Male

DRUGS (1)
  1. XELJANZ XR [Suspect]
     Active Substance: TOFACITINIB CITRATE
     Indication: Rheumatoid arthritis
     Dates: end: 202503

REACTIONS (6)
  - Skin cancer [Unknown]
  - Immunosuppression [Unknown]
  - Squamous cell carcinoma [Unknown]
  - Bronchitis [Unknown]
  - Urticaria [Unknown]
  - Impaired healing [Unknown]

NARRATIVE: CASE EVENT DATE: 20240101
